FAERS Safety Report 18456380 (Version 2)
Quarter: 2020Q4

REPORT INFORMATION
  Report Type: Spontaneous
  Country: US (occurrence: US)
  Receive Date: 20201103
  Receipt Date: 20201106
  Transmission Date: 20210114
  Serious: Yes (Other)
  Sender: FDA-Public Use
  Company Number: US-SA-2020SA308461

PATIENT

DRUGS (1)
  1. DUPILUMAB [Suspect]
     Active Substance: DUPILUMAB
     Indication: DERMATITIS ATOPIC
     Dosage: UNK

REACTIONS (13)
  - Pruritus [Unknown]
  - Lip swelling [Unknown]
  - Erythema [Unknown]
  - Swelling face [Recovered/Resolved]
  - Lip erythema [Unknown]
  - Gastrointestinal pain [Unknown]
  - Skin plaque [Unknown]
  - Periorbital oedema [Unknown]
  - Angioedema [Recovering/Resolving]
  - Rash [Unknown]
  - Urticaria [Unknown]
  - Face oedema [Unknown]
  - Eye swelling [Unknown]
